FAERS Safety Report 11649864 (Version 2)
Quarter: 2015Q4

REPORT INFORMATION
  Report Type: Spontaneous
  Country: BR (occurrence: BR)
  Receive Date: 20151021
  Receipt Date: 20151023
  Transmission Date: 20160304
  Serious: Yes (Other)
  Sender: FDA-Public Use
  Company Number: BR-ABBVIE-15K-020-1483069-00

PATIENT
  Age: 38 Year
  Sex: Female
  Weight: 68 kg

DRUGS (8)
  1. HUMIRA [Interacting]
     Active Substance: ADALIMUMAB
     Route: 058
  2. PREDNISONE. [Concomitant]
     Active Substance: PREDNISONE
     Route: 048
  3. KETOCONAZOLE. [Interacting]
     Active Substance: KETOCONAZOLE
     Indication: DERMATITIS ALLERGIC
     Route: 048
     Dates: start: 20151003, end: 20151007
  4. ALENDRONATE SODIUM. [Concomitant]
     Active Substance: ALENDRONATE SODIUM
     Indication: PRODUCT USED FOR UNKNOWN INDICATION
     Route: 048
     Dates: start: 20121229
  5. PREDNISONE. [Concomitant]
     Active Substance: PREDNISONE
     Indication: RHEUMATOID ARTHRITIS
     Route: 048
     Dates: start: 2007
  6. OSCAL [Concomitant]
     Active Substance: CALCIUM CARBONATE
     Indication: BONE DISORDER
     Route: 048
     Dates: start: 20121229
  7. HUMIRA [Suspect]
     Active Substance: ADALIMUMAB
     Indication: RHEUMATOID ARTHRITIS
     Dosage: INDUCTION DOSE
     Route: 058
  8. KETOCONAZOLE. [Interacting]
     Active Substance: KETOCONAZOLE
     Indication: BLISTER

REACTIONS (9)
  - Drug interaction [Unknown]
  - Pain in extremity [Unknown]
  - Blister [Recovering/Resolving]
  - Pruritus [Unknown]
  - Arthralgia [Not Recovered/Not Resolved]
  - Dermatitis allergic [Recovering/Resolving]
  - Abasia [Unknown]
  - Pain [Not Recovered/Not Resolved]
  - Blood cholesterol increased [Unknown]

NARRATIVE: CASE EVENT DATE: 2015
